FAERS Safety Report 6597707-7 (Version None)
Quarter: 2010Q1

REPORT INFORMATION
  Report Type: 
  Country: None (occurrence: None)
  Receive Date: 20100216
  Receipt Date: 20100201
  Transmission Date: 20100710
  Serious: Yes (Other)
  Sender: FDA-Public Use
  Company Number: 2010AL000080

PATIENT
  Age: 36 Year
  Sex: Female

DRUGS (4)
  1. DIAZEPAM TAB [Suspect]
     Indication: ENDOSCOPY
     Dosage: 20 MG;QD;IV
     Route: 042
  2. DEMEROL [Concomitant]
  3. ANEXATE [Concomitant]
  4. ORAL CONTRACEPTIVE NOS [Concomitant]

REACTIONS (3)
  - OXYGEN SATURATION DECREASED [None]
  - RESTLESSNESS [None]
  - SEDATION [None]
